FAERS Safety Report 4925888-7 (Version None)
Quarter: 2006Q1

REPORT INFORMATION
  Report Type: 
  Country: None (occurrence: None)
  Receive Date: 20060228
  Receipt Date: 20050411
  Transmission Date: 20060701
  Serious: No
  Sender: FDA-Public Use
  Company Number: US-GLAXOSMITHKLINE-A0553588A

PATIENT
  Sex: Female

DRUGS (4)
  1. LAMICTAL [Suspect]
     Indication: BIPOLAR DISORDER
     Dosage: 125MG TWICE PER DAY
     Route: 048
  2. LITHIUM [Concomitant]
  3. BIRTH CONTROL PILLS [Concomitant]
  4. ZOLOFT [Concomitant]

REACTIONS (1)
  - DYSPHAGIA [None]
